FAERS Safety Report 7014506-2 (Version None)
Quarter: 2010Q3

REPORT INFORMATION
  Report Type: 
  Country: None (occurrence: None)
  Receive Date: 20100922
  Receipt Date: 20100906
  Transmission Date: 20110219
  Serious: Yes (Death)
  Sender: FDA-Public Use
  Company Number: AUR-APL-2010-02297

PATIENT
  Age: 25 Week

DRUGS (4)
  1. CEFAZOLIN [Suspect]
     Indication: INFECTION PROPHYLAXIS
     Dosage: TRANSPLACENTAL
     Route: 064
  2. AMOXICILLIN [Suspect]
     Indication: INFECTION PROPHYLAXIS
     Dosage: TRANSPLACENTAL
     Route: 064
  3. ERYTHROMYCIN [Suspect]
     Indication: INFECTION PROPHYLAXIS
     Dosage: TRANSPLACENTAL
     Route: 064
  4. AMPICILLIN AND SULBACTAM [Suspect]
     Indication: INFECTION PROPHYLAXIS
     Dosage: TRANSPLACENTAL
     Route: 064

REACTIONS (5)
  - BACTERAEMIA [None]
  - CAESAREAN SECTION [None]
  - GUILLAIN-BARRE SYNDROME [None]
  - MATERNAL DRUGS AFFECTING FOETUS [None]
  - PNEUMONIA KLEBSIELLA [None]
